FAERS Safety Report 8052725-7 (Version None)
Quarter: 2012Q1

REPORT INFORMATION
  Report Type: 
  Country: None (occurrence: None)
  Receive Date: 20120117
  Receipt Date: 20120117
  Transmission Date: 20120608
  Serious: Yes (Hospitalization)
  Sender: FDA-Public Use
  Company Number: None

PATIENT
  Sex: Male
  Weight: 89.8 kg

DRUGS (1)
  1. ERBITUX [Suspect]
     Dosage: 4876 MG

REACTIONS (9)
  - PULMONARY EMBOLISM [None]
  - SUBCLAVIAN VEIN THROMBOSIS [None]
  - LUNG CONSOLIDATION [None]
  - AXILLARY VEIN THROMBOSIS [None]
  - SUPRAVENTRICULAR TACHYCARDIA [None]
  - ASTHENIA [None]
  - MALAISE [None]
  - HYPOPHAGIA [None]
  - DEEP VEIN THROMBOSIS [None]
